FAERS Safety Report 8924373 (Version 2)
Quarter: 2012Q4

REPORT INFORMATION
  Report Type: 
  Country: DE (occurrence: DE)
  Receive Date: 20121126
  Receipt Date: 20121220
  Transmission Date: 20130627
  Serious: Yes (Disabling)
  Sender: FDA-Public Use
  Company Number: DE-GLAXOSMITHKLINE-D0077862A

PATIENT
  Sex: Female
  Weight: 65 kg

DRUGS (4)
  1. NARAMIG [Suspect]
     Indication: MIGRAINE
     Dosage: 2.5MG As required
     Route: 048
     Dates: start: 201010
  2. ALMOGRAN [Suspect]
     Indication: MIGRAINE
     Dosage: 12.5MG Monthly
     Route: 048
     Dates: start: 200612, end: 201009
  3. IMIGRAN [Suspect]
     Indication: MIGRAINE
     Dosage: 50MG Monthly
     Route: 048
     Dates: start: 200603, end: 200612
  4. BELOC ZOK [Concomitant]
     Indication: MIGRAINE
     Dosage: 47.5MG Per day
     Route: 048
     Dates: start: 201009

REACTIONS (5)
  - Biliary cirrhosis primary [Recovered/Resolved with Sequelae]
  - Fatigue [Not Recovered/Not Resolved]
  - Asthenia [Not Recovered/Not Resolved]
  - Hepatic enzyme abnormal [Unknown]
  - Abdominal pain upper [Unknown]
